FAERS Safety Report 11722776 (Version 1)
Quarter: 2015Q4

REPORT INFORMATION
  Report Type: Spontaneous
  Country: IT (occurrence: IT)
  Receive Date: 20151111
  Receipt Date: 20151111
  Transmission Date: 20160304
  Serious: Yes (Hospitalization)
  Sender: FDA-Public Use
  Company Number: PHHY2015IT143263

PATIENT
  Age: 78 Year
  Sex: Female

DRUGS (9)
  1. SIRIO [Concomitant]
     Active Substance: CARBIDOPA\MELEVODOPA
     Dosage: 125 UNK, UNK
     Route: 065
  2. QUETIAPINE [Suspect]
     Active Substance: QUETIAPINE
     Indication: CONFUSIONAL STATE
     Dosage: 12.5 MG, QD
     Route: 048
     Dates: start: 20151022, end: 20151026
  3. SERENASE [Suspect]
     Active Substance: HALOPERIDOL
     Indication: AGGRESSION
  4. SIRIO [Concomitant]
     Active Substance: CARBIDOPA\MELEVODOPA
     Indication: PARKINSON^S DISEASE
     Dosage: 250 MG, UNK
     Route: 048
  5. SERENASE [Suspect]
     Active Substance: HALOPERIDOL
     Indication: CONFUSIONAL STATE
     Dosage: 20 DRP, ONCE/SINGLE
     Route: 048
     Dates: start: 20151022, end: 20151022
  6. QUETIAPINE [Suspect]
     Active Substance: QUETIAPINE
     Indication: AGGRESSION
  7. REQUIP [Concomitant]
     Active Substance: ROPINIROLE HYDROCHLORIDE
     Indication: PARKINSON^S DISEASE
     Dosage: 24 MG, UNK
     Route: 048
  8. SINEMET [Concomitant]
     Active Substance: CARBIDOPA\LEVODOPA
     Indication: PARKINSON^S DISEASE
     Dosage: 1000 MG, UNK
     Route: 048
  9. RASAGILINE [Concomitant]
     Active Substance: RASAGILINE
     Indication: PARKINSON^S DISEASE
     Dosage: 1 MG, UNK
     Route: 048

REACTIONS (5)
  - Gait disturbance [Not Recovered/Not Resolved]
  - Muscle rigidity [Not Recovered/Not Resolved]
  - Bradyphrenia [Not Recovered/Not Resolved]
  - Slow speech [Not Recovered/Not Resolved]
  - Bradykinesia [Not Recovered/Not Resolved]

NARRATIVE: CASE EVENT DATE: 20151022
